FAERS Safety Report 23554674 (Version 1)
Quarter: 2024Q1

REPORT INFORMATION
  Report Type: Spontaneous
  Country: US (occurrence: US)
  Receive Date: 20240222
  Receipt Date: 20240222
  Transmission Date: 20240409
  Serious: No
  Sender: FDA-Public Use
  Company Number: US-TEVA-VS-3142059

PATIENT
  Age: 51 Year

DRUGS (1)
  1. AUSTEDO XR [Suspect]
     Active Substance: DEUTETRABENAZINE
     Dosage: DAILY; ONGOING
     Route: 048
     Dates: start: 202309

REACTIONS (1)
  - Localised infection [Unknown]
